FAERS Safety Report 10189493 (Version 1)
Quarter: 2014Q2

REPORT INFORMATION
  Report Type: Spontaneous
  Country: BR (occurrence: BR)
  Receive Date: 20140522
  Receipt Date: 20140522
  Transmission Date: 20141212
  Serious: Yes (Death, Life-Threatening, Hospitalization)
  Sender: FDA-Public Use
  Company Number: BR-BAYER-2014-074114

PATIENT
  Age: 65 Year
  Sex: 0

DRUGS (2)
  1. ULTRAVIST [Suspect]
     Indication: COMPUTERISED TOMOGRAM ABDOMEN
     Dosage: UNK
     Route: 042
     Dates: start: 20140513, end: 20140513
  2. ULTRAVIST [Suspect]
     Indication: COMPUTERISED TOMOGRAM CORONARY ARTERY

REACTIONS (7)
  - Cardio-respiratory arrest [Fatal]
  - Cardio-respiratory arrest [Recovered/Resolved]
  - Pruritus generalised [None]
  - Erythema [Recovering/Resolving]
  - Agitation [None]
  - Peripheral coldness [None]
  - Skin discolouration [None]
